FAERS Safety Report 4710044-8 (Version None)
Quarter: 2005Q3

REPORT INFORMATION
  Report Type: 
  Country: None (occurrence: None)
  Receive Date: 20050708
  Receipt Date: 20050630
  Transmission Date: 20060218
  Serious: Yes (Other)
  Sender: FDA-Public Use
  Company Number: FR-ABBOTT-05P-056-0304813-00

PATIENT
  Sex: Male

DRUGS (8)
  1. DEPAKENE [Suspect]
     Indication: EPILEPSY
     Route: 002
     Dates: start: 20050618, end: 20050618
  2. DEPAKENE [Suspect]
     Route: 002
     Dates: start: 20040101, end: 20050617
  3. DEPAKENE [Suspect]
     Route: 002
     Dates: start: 20050617, end: 20050617
  4. DEPAKENE [Suspect]
     Route: 048
     Dates: start: 20050601
  5. PRAVASTATIN SODIUM [Concomitant]
     Indication: DRUG USE FOR UNKNOWN INDICATION
     Route: 048
  6. AMLODIPINE BESYLATE [Concomitant]
     Indication: DRUG USE FOR UNKNOWN INDICATION
     Route: 048
  7. ACETYLSALICYLATE LYSINE [Concomitant]
     Indication: DRUG USE FOR UNKNOWN INDICATION
     Route: 048
  8. BISOPROLOL FUMARATE [Concomitant]
     Indication: DRUG USE FOR UNKNOWN INDICATION
     Route: 048

REACTIONS (3)
  - EPILEPSY [None]
  - INTENTIONAL MISUSE [None]
  - STOMATITIS [None]
